FAERS Safety Report 11986601 (Version 1)
Quarter: 2016Q1

REPORT INFORMATION
  Report Type: Spontaneous
  Country: US (occurrence: US)
  Receive Date: 20160202
  Receipt Date: 20160202
  Transmission Date: 20160526
  Serious: No
  Sender: FDA-Public Use
  Company Number: US-UCBSA-2014014747

PATIENT

DRUGS (3)
  1. KEPPRA [Suspect]
     Active Substance: LEVETIRACETAM
     Dosage: 1000MG IN THE MORNING AND 2000MG AT NIGHT
  2. KEPPRA [Suspect]
     Active Substance: LEVETIRACETAM
     Indication: PRODUCT USED FOR UNKNOWN INDICATION
     Dosage: 2000 MG, 2X/DAY (BID), OVER A YEAR
  3. LAMICTAL [Concomitant]
     Active Substance: LAMOTRIGINE
     Indication: PRODUCT USED FOR UNKNOWN INDICATION
     Dosage: UNK

REACTIONS (9)
  - Feeling abnormal [Unknown]
  - Reading disorder [Unknown]
  - Off label use [Unknown]
  - Fatigue [Recovering/Resolving]
  - Anxiety [Unknown]
  - Memory impairment [Unknown]
  - Aura [Not Recovered/Not Resolved]
  - Disorientation [Unknown]
  - Obsessive-compulsive disorder [Unknown]
